FAERS Safety Report 7825144-3 (Version None)
Quarter: 2011Q4

REPORT INFORMATION
  Report Type: 
  Country: None (occurrence: None)
  Receive Date: 20111014
  Receipt Date: 20111003
  Transmission Date: 20120403
  Serious: Yes (Hospitalization)
  Sender: FDA-Public Use
  Company Number: 2011AP002301

PATIENT
  Age: 67 Year
  Sex: Female

DRUGS (7)
  1. BISOPROLOL FUMARATE [Concomitant]
  2. PREDNISOLONE [Concomitant]
  3. FLUOXETINE HYDROCHLORIDE [Concomitant]
  4. PREMARIN [Concomitant]
  5. ALENDRONATE SODIUM [Suspect]
     Indication: OSTEOPOROSIS
     Dosage: 70 MG;UNKNOWN;PO;QW
     Route: 048
     Dates: start: 20060901, end: 20110901
  6. BISOPROLOL FUMARATE [Concomitant]
  7. LEFLUNOMIDE [Concomitant]

REACTIONS (1)
  - FEMUR FRACTURE [None]
